FAERS Safety Report 21330450 (Version 1)
Quarter: 2022Q3

REPORT INFORMATION
  Report Type: Spontaneous
  Country: US (occurrence: US)
  Receive Date: 20220913
  Receipt Date: 20220913
  Transmission Date: 20221027
  Serious: No
  Sender: FDA-Public Use
  Company Number: US-BAUSCHBL-2022BNL000260

PATIENT
  Age: 73 Year
  Sex: Female
  Weight: 59.020 kg

DRUGS (4)
  1. DORZOLAMIDE HYDROCHLORIDE [Suspect]
     Active Substance: DORZOLAMIDE HYDROCHLORIDE
     Indication: Glaucoma
     Route: 047
     Dates: start: 20220526
  2. DORZOLAMIDE HYDROCHLORIDE [Suspect]
     Active Substance: DORZOLAMIDE HYDROCHLORIDE
     Route: 047
     Dates: start: 20220801
  3. LATANOPROST [Suspect]
     Active Substance: LATANOPROST
     Indication: Glaucoma
     Route: 047
  4. TIMOLOL [Concomitant]
     Active Substance: TIMOLOL
     Indication: Product used for unknown indication
     Dosage: 61314-227-05
     Route: 047

REACTIONS (8)
  - Asthenopia [Unknown]
  - Confusional state [Unknown]
  - Dyschromatopsia [Unknown]
  - Visual impairment [Unknown]
  - Dizziness [Unknown]
  - Headache [Unknown]
  - Photophobia [Unknown]
  - Instillation site pain [Unknown]
